FAERS Safety Report 13536011 (Version 1)
Quarter: 2017Q2

REPORT INFORMATION
  Report Type: Spontaneous
  Country: US (occurrence: US)
  Receive Date: 20170511
  Receipt Date: 20170511
  Transmission Date: 20170830
  Serious: Yes (Other)
  Sender: FDA-Public Use
  Company Number: None

PATIENT
  Age: 40 Year
  Sex: Female
  Weight: 146.8 kg

DRUGS (7)
  1. NECON 1/35 [Suspect]
     Active Substance: ETHINYL ESTRADIOL\NORETHINDRONE
     Indication: INFERTILITY
     Dates: start: 20170428, end: 20170506
  2. VITAMIN D [Concomitant]
     Active Substance: CHOLECALCIFEROL
  3. VIT B [Concomitant]
     Active Substance: VITAMIN B
  4. PRE-NATAL VITAMINS [Concomitant]
  5. ROYAL JELLY [Concomitant]
     Active Substance: ROYAL JELLY
  6. COQ10 [Concomitant]
     Active Substance: UBIDECARENONE
  7. VITAMIN SUPPLEMENS [Concomitant]

REACTIONS (5)
  - Suicidal ideation [None]
  - Metrorrhagia [None]
  - Depression [None]
  - Homicidal ideation [None]
  - Mood swings [None]

NARRATIVE: CASE EVENT DATE: 20170507
